FAERS Safety Report 6824701-0 (Version None)
Quarter: 2010Q3

REPORT INFORMATION
  Report Type: 
  Country: None (occurrence: None)
  Receive Date: 20100708
  Receipt Date: 20061114
  Transmission Date: 20110219
  Serious: No
  Sender: FDA-Public Use
  Company Number: US-PFIZER INC-2006142789

PATIENT
  Age: 68 Year
  Sex: Female
  Weight: 58.06 kg

DRUGS (7)
  1. CHANTIX [Suspect]
     Indication: SMOKING CESSATION THERAPY
     Route: 048
     Dates: start: 20061109
  2. EFFEXOR [Concomitant]
  3. CALCIUM CARBONATE [Concomitant]
  4. FOSAMAX [Concomitant]
  5. NICOTINE [Concomitant]
  6. VESICARE [Concomitant]
  7. VITAMINS [Concomitant]

REACTIONS (1)
  - DECREASED APPETITE [None]
